FAERS Safety Report 12268793 (Version 1)
Quarter: 2016Q2

REPORT INFORMATION
  Report Type: Spontaneous
  Country: CN (occurrence: CN)
  Receive Date: 20160414
  Receipt Date: 20160414
  Transmission Date: 20160815
  Serious: Yes (Other)
  Sender: FDA-Public Use
  Company Number: CN-PFIZER INC-2016208749

PATIENT
  Age: 46 Year
  Sex: Female

DRUGS (3)
  1. SOLU-MEDROL [Suspect]
     Active Substance: METHYLPREDNISOLONE SODIUM SUCCINATE
     Dosage: 40 MG, 3X/DAY
     Route: 041
     Dates: start: 20151123, end: 20151124
  2. SOLU-MEDROL [Suspect]
     Active Substance: METHYLPREDNISOLONE SODIUM SUCCINATE
     Dosage: 40 MG, 2X/DAY
     Route: 041
     Dates: start: 20151125, end: 20151126
  3. SOLU-MEDROL [Suspect]
     Active Substance: METHYLPREDNISOLONE SODIUM SUCCINATE
     Indication: SEPTIC SHOCK
     Dosage: 80 MG, 2X/DAY
     Route: 041
     Dates: start: 20151118, end: 20151122

REACTIONS (1)
  - Agitation [Recovering/Resolving]

NARRATIVE: CASE EVENT DATE: 20151126
